FAERS Safety Report 22160085 (Version 1)
Quarter: 2023Q1

REPORT INFORMATION
  Report Type: Spontaneous
  Country: US (occurrence: US)
  Receive Date: 20230331
  Receipt Date: 20230331
  Transmission Date: 20230418
  Serious: Yes (Death, Hospitalization, Other)
  Sender: FDA-Public Use
  Company Number: US-Indicus Pharma-000939

PATIENT
  Age: 53 Year
  Sex: Male

DRUGS (6)
  1. METFORMIN [Suspect]
     Active Substance: METFORMIN HYDROCHLORIDE
     Dosage: 80, 1000 MG METFORMIN TABLETS ONE HOUR PRIOR
  2. LISINOPRIL [Concomitant]
     Active Substance: LISINOPRIL
  3. GABAPENTIN [Concomitant]
     Active Substance: GABAPENTIN
  4. BACLOFEN [Concomitant]
     Active Substance: BACLOFEN
  5. ESCITALOPRAM [Concomitant]
     Active Substance: ESCITALOPRAM OXALATE
  6. BENZTROPINE [Concomitant]
     Active Substance: BENZTROPINE

REACTIONS (5)
  - Lactic acidosis [Fatal]
  - Shock [Fatal]
  - Brain injury [Fatal]
  - Intentional overdose [Fatal]
  - Toxicity to various agents [Fatal]
